FAERS Safety Report 6082731-3 (Version None)
Quarter: 2009Q1

REPORT INFORMATION
  Report Type: 
  Country: None (occurrence: None)
  Receive Date: 20090218
  Receipt Date: 20090210
  Transmission Date: 20090719
  Serious: Yes (Disabling)
  Sender: FDA-Public Use
  Company Number: US-PFIZER INC-2009156813

PATIENT
  Sex: Male
  Weight: 77.098 kg

DRUGS (18)
  1. FLAGYL [Suspect]
     Indication: DIARRHOEA
     Dosage: 500 MG, 3X/DAY
     Route: 048
     Dates: start: 20080529, end: 20080101
  2. VIBRAMYCIN [Suspect]
     Dosage: UNK
     Route: 048
     Dates: start: 20080101
  3. LYRICA [Suspect]
     Indication: PARAESTHESIA
     Dosage: UNK
     Dates: start: 20080821
  4. LYRICA [Suspect]
     Indication: HYPOAESTHESIA
  5. NEURONTIN [Suspect]
     Dosage: UNK
     Dates: start: 20080101
  6. VANCOMYCIN [Suspect]
     Dosage: UNK
     Route: 048
     Dates: start: 20080912
  7. VANCOMYCIN HCL [Suspect]
     Dosage: 250 MG, UNK
  8. ALPRAZOLAM [Concomitant]
     Dosage: UNK
  9. LOPID [Concomitant]
  10. DIURIL [Concomitant]
     Dosage: UNK
     Route: 048
  11. MULTI-VITAMINS [Concomitant]
     Dosage: UNK
  12. GEMFIBROZIL [Concomitant]
  13. DILTIAZEM [Concomitant]
     Dosage: UNK
  14. CHLOROTHIAZIDE [Concomitant]
     Dosage: UNK
  15. DOXAZOSIN MESILATE [Concomitant]
     Dosage: UNK
  16. FLOMAX [Concomitant]
     Dosage: UNK
  17. CYCLOBENZAPRINE [Concomitant]
     Dosage: UNK
  18. HYOSCYAMINE [Concomitant]
     Dosage: UNK

REACTIONS (9)
  - DIARRHOEA [None]
  - DISABILITY [None]
  - HOSPITALISATION [None]
  - HYPOAESTHESIA [None]
  - PAIN [None]
  - PARAESTHESIA [None]
  - SENSORY DISTURBANCE [None]
  - URINARY TRACT INFECTION [None]
  - WEIGHT DECREASED [None]
